FAERS Safety Report 8643666 (Version 2)
Quarter: 2012Q4

REPORT INFORMATION
  Report Type: 
  Country: US (occurrence: US)
  Receive Date: 20120629
  Receipt Date: 20121210
  Transmission Date: 20130627
  Serious: Yes (Death)
  Sender: FDA-Public Use
  Company Number: US-ROCHE-1082713

PATIENT
  Sex: Male
  Weight: 92.62 kg

DRUGS (1)
  1. AVASTIN [Suspect]
     Indication: METASTATIC NEOPLASM
     Route: 042
     Dates: start: 20110916, end: 20120120

REACTIONS (1)
  - Death [Fatal]
